FAERS Safety Report 21283410 (Version 1)
Quarter: 2022Q3

REPORT INFORMATION
  Report Type: Spontaneous
  Country: US (occurrence: US)
  Receive Date: 20220901
  Receipt Date: 20220901
  Transmission Date: 20221027
  Serious: No
  Sender: FDA-Public Use
  Company Number: US-PFIZER INC-202201104554

PATIENT
  Age: 66 Year
  Sex: Female
  Weight: 46.27 kg

DRUGS (1)
  1. DEPO-ESTRADIOL [Suspect]
     Active Substance: ESTRADIOL CYPIONATE
     Indication: Oestrogen deficiency
     Dosage: UNK, MONTHLY (SHE DOES 2MG OR 2CC INJECTED MONTHLY, UNSURE IF 2MG OR 2CC)

REACTIONS (1)
  - Hot flush [Unknown]
